FAERS Safety Report 18867435 (Version 3)
Quarter: 2021Q2

REPORT INFORMATION
  Report Type: Report from Study
  Country: CO (occurrence: CO)
  Receive Date: 20210209
  Receipt Date: 20210505
  Transmission Date: 20210717
  Serious: Yes (Other)
  Sender: FDA-Public Use
  Company Number: NVSC2020CO348869

PATIENT
  Sex: Female
  Weight: 65 kg

DRUGS (19)
  1. KISQALI [Suspect]
     Active Substance: RIBOCICLIB
     Dosage: 200 MG, 2 TAB
     Route: 048
     Dates: start: 202103
  2. LEVOTHYROXINE. [Concomitant]
     Active Substance: LEVOTHYROXINE
     Indication: THYROID DISORDER
     Dosage: 50 MG, QD  (START DATE: 15 YEARS AGO)
     Route: 048
  3. ISPAGHULA [Concomitant]
     Active Substance: PLANTAGO OVATA SEED
     Indication: CONSTIPATION
     Dosage: UNK
     Route: 065
  4. ISPAGHULA [Concomitant]
     Active Substance: PLANTAGO OVATA SEED
     Dosage: UNK (EVERY 12 HOURS) (AFTER BREAKFAST AND AFTER FOOD), CURRENTLY ONLY TAKES IT AT NIGHT
     Route: 048
     Dates: start: 202011
  5. KISQALI [Suspect]
     Active Substance: RIBOCICLIB
     Dosage: 200 MG, 2 TAB
     Route: 048
     Dates: end: 202102
  6. LEVOTHYROXINE. [Concomitant]
     Active Substance: LEVOTHYROXINE
     Indication: HYPOTHYROIDISM
     Dosage: 50 MG, QD
     Route: 048
     Dates: start: 202003
  7. CALCIUM [Concomitant]
     Active Substance: CALCIUM
     Dosage: 600 MG, QD
     Route: 048
     Dates: start: 202101
  8. BUSCAPINE [Concomitant]
     Active Substance: BUTYLSCOPOLAMINE
     Dosage: 10 MG (AT NEEDED)
     Route: 048
     Dates: start: 202003
  9. KISQALI [Suspect]
     Active Substance: RIBOCICLIB
     Indication: BREAST CANCER METASTATIC
     Dosage: 600 MG, QD (3 OF 200 MG)
     Route: 048
     Dates: start: 20200825
  10. KISQALI [Suspect]
     Active Substance: RIBOCICLIB
     Dosage: 600 MG, QD
     Route: 048
     Dates: start: 202010
  11. FEMARA [Suspect]
     Active Substance: LETROZOLE
     Indication: BREAST CANCER
     Dosage: 2.5 MG, QD
     Route: 048
     Dates: start: 20200825
  12. FEMARA [Suspect]
     Active Substance: LETROZOLE
     Dosage: 2.5 MG, QD
     Route: 048
     Dates: start: 202010
  13. LEVOTHYROXINE. [Concomitant]
     Active Substance: LEVOTHYROXINE
     Dosage: 50 MG, QD
     Route: 048
     Dates: start: 202007
  14. CALCIUM [Concomitant]
     Active Substance: CALCIUM
     Indication: BONE DISORDER
     Dosage: 1 UNK, QD
     Route: 048
     Dates: start: 202011
  15. KISQALI [Suspect]
     Active Substance: RIBOCICLIB
     Dosage: 400 MG, QD (TABLET OF 200 MG)
     Route: 048
     Dates: start: 202010
  16. BUSCAPINE [Concomitant]
     Active Substance: BUTYLSCOPOLAMINE
     Indication: ABDOMINAL PAIN UPPER
     Dosage: UNK
     Route: 048
  17. BUSCAPINE [Concomitant]
     Active Substance: BUTYLSCOPOLAMINE
     Dosage: UNK (WHEN NEEDS IT, START DATE: 2 MONTHS AGO)
     Route: 048
  18. PANTOPRAZOLE [Concomitant]
     Active Substance: PANTOPRAZOLE
     Indication: SYNOVIAL CYST
     Dosage: 40 MG
     Route: 048
     Dates: start: 202011
  19. PREGABALIN. [Concomitant]
     Active Substance: PREGABALIN
     Indication: BREAST PAIN
     Dosage: UNK
     Route: 065

REACTIONS (9)
  - Abdominal pain [Unknown]
  - Alopecia [Recovered/Resolved]
  - Lip dry [Not Recovered/Not Resolved]
  - Nasal dryness [Recovered/Resolved]
  - Tongue dry [Not Recovered/Not Resolved]
  - Dry mouth [Recovered/Resolved]
  - Arthralgia [Not Recovered/Not Resolved]
  - Nasal pruritus [Recovered/Resolved]
  - Helicobacter infection [Recovered/Resolved]
